FAERS Safety Report 5186899-2 (Version None)
Quarter: 2006Q4

REPORT INFORMATION
  Report Type: 
  Country: None (occurrence: None)
  Receive Date: 20061220
  Receipt Date: 20061026
  Transmission Date: 20070319
  Serious: No
  Sender: FDA-Public Use
  Company Number: US-AMGEN-KDL198404

PATIENT
  Sex: Female

DRUGS (3)
  1. ENBREL [Suspect]
     Indication: RHEUMATOID ARTHRITIS
     Route: 058
     Dates: start: 20011001
  2. METHOTREXATE [Concomitant]
     Dates: start: 20050901
  3. PLAQUENIL [Concomitant]
     Dates: start: 20030101

REACTIONS (3)
  - COUGH [None]
  - PHARYNGOLARYNGEAL PAIN [None]
  - SINUS CONGESTION [None]
